FAERS Safety Report 21905902 (Version 1)
Quarter: 2023Q1

REPORT INFORMATION
  Report Type: Spontaneous
  Country: US (occurrence: None)
  Receive Date: 20230124
  Receipt Date: 20230124
  Transmission Date: 20230418
  Serious: No
  Sender: FDA-Public Use
  Company Number: 2023A001823

PATIENT
  Sex: Female
  Weight: 84.4 kg

DRUGS (2)
  1. BRILINTA [Suspect]
     Active Substance: TICAGRELOR
     Indication: Anticoagulant therapy
     Route: 048
     Dates: start: 202009
  2. ASPIRIN [Suspect]
     Active Substance: ASPIRIN
     Indication: Aneurysm
     Route: 048

REACTIONS (3)
  - Nasopharyngitis [Unknown]
  - Carotid artery stenosis [Unknown]
  - Dyspnoea [Unknown]
